FAERS Safety Report 8872942 (Version 1)
Quarter: 2012Q4

REPORT INFORMATION
  Report Type: 
  Country: FR (occurrence: FR)
  Receive Date: 20121029
  Receipt Date: 20121029
  Transmission Date: 20130627
  Serious: Yes (Death, Hospitalization)
  Sender: FDA-Public Use
  Company Number: PHHY2012FR096957

PATIENT
  Age: 70 Year
  Sex: Female
  Weight: 60 kg

DRUGS (7)
  1. VANCOMYCIN SANDOZ [Suspect]
     Indication: LUNG DISORDER
     Dosage: 2 g, QD
     Route: 042
     Dates: start: 20120706, end: 20120709
  2. AMIKACIN [Suspect]
     Indication: LUNG DISORDER
     Dosage: 1500 mg, UNK
     Route: 042
     Dates: start: 20120706, end: 20120706
  3. CEFEPIME [Suspect]
     Indication: LUNG DISORDER
     Dosage: 2 g, TID
     Route: 042
     Dates: start: 20120706, end: 20120709
  4. DITROPAN [Concomitant]
     Dosage: 5 mg daily
     Dates: start: 20120704, end: 20120708
  5. ERYTHROCINE [Concomitant]
     Dates: start: 20120709, end: 20120709
  6. INEXIUM//ESOMEPRAZOLE MAGNESIUM [Concomitant]
     Dates: start: 20120709, end: 20120709
  7. LASILIX [Concomitant]
     Dates: start: 20120704, end: 20120709

REACTIONS (5)
  - Gastrointestinal haemorrhage [Fatal]
  - Peripheral ischaemia [Fatal]
  - Renal failure [Fatal]
  - Hyperkalaemia [Fatal]
  - Overdose [Unknown]
